FAERS Safety Report 13219612 (Version 1)
Quarter: 2017Q1

REPORT INFORMATION
  Report Type: Report from Study
  Country: US (occurrence: US)
  Receive Date: 20170210
  Receipt Date: 20170210
  Transmission Date: 20170428
  Serious: Yes (Death)
  Sender: FDA-Public Use
  Company Number: US-ROCHE-1890827

PATIENT
  Age: 46 Year
  Sex: Male
  Weight: 89.6 kg

DRUGS (2)
  1. BORTEZOMIB [Suspect]
     Active Substance: BORTEZOMIB
     Indication: RENAL CELL CARCINOMA
     Dosage: LAST DOSE ON 05/SEP/2013 AT 2.7 MG
     Route: 042
     Dates: start: 20130715, end: 20130916
  2. BEVACIZUMAB [Suspect]
     Active Substance: BEVACIZUMAB
     Indication: RENAL CELL CARCINOMA
     Dosage: LAST DOSE ON 26/AUG/2013 AT 1448 MG
     Route: 042
     Dates: start: 20130715, end: 20130916

REACTIONS (1)
  - Death [Fatal]

NARRATIVE: CASE EVENT DATE: 20130930
